FAERS Safety Report 16175252 (Version 2)
Quarter: 2022Q1

REPORT INFORMATION
  Report Type: Spontaneous
  Country: CA (occurrence: CA)
  Receive Date: 20190409
  Receipt Date: 20220126
  Transmission Date: 20220423
  Serious: Yes (Disabling, Other)
  Sender: FDA-Public Use
  Company Number: CA-009507513-1904CAN003828

PATIENT
  Age: 53 Year
  Sex: Male
  Weight: 121 kg

DRUGS (1)
  1. JANUVIA [Suspect]
     Active Substance: SITAGLIPTIN PHOSPHATE
     Indication: Type 2 diabetes mellitus
     Dosage: 50.0 MILLIGRAM, 1 EVERY 1 DAY(S)
     Route: 048
     Dates: start: 20170901

REACTIONS (4)
  - Faecaloma [Recovering/Resolving]
  - Decreased appetite [Recovering/Resolving]
  - Constipation [Recovering/Resolving]
  - Nausea [Recovering/Resolving]

NARRATIVE: CASE EVENT DATE: 20180601
